FAERS Safety Report 15771074 (Version 5)
Quarter: 2019Q1

REPORT INFORMATION
  Report Type: Spontaneous
  Country: JP (occurrence: JP)
  Receive Date: 20181228
  Receipt Date: 20190306
  Transmission Date: 20190417
  Serious: Yes (Disabling, Other)
  Sender: FDA-Public Use
  Company Number: JP-009507513-1812JPN003632J

PATIENT
  Age: 64 Year
  Sex: Female

DRUGS (8)
  1. LOXONIN [Suspect]
     Active Substance: LOXOPROFEN SODIUM
     Dosage: 100 MILLIGRAM, QD
     Dates: start: 20180702, end: 20180716
  2. MONTELUKAST KM [Suspect]
     Active Substance: MONTELUKAST SODIUM
     Dosage: 10 MILLIGRAM, QD
     Route: 048
     Dates: start: 20181006, end: 20181013
  3. LOXONIN [Suspect]
     Active Substance: LOXOPROFEN SODIUM
     Indication: ARTHRALGIA
     Dosage: 100 MILLIGRAM, QD
     Route: 061
     Dates: start: 20180821, end: 20180905
  4. DESALEX TABLETS 5MG [Suspect]
     Active Substance: DESLORATADINE
     Dosage: 5 MILLIGRAM, QD
     Route: 048
     Dates: start: 20180925, end: 20181106
  5. MONTELUKAST KM [Suspect]
     Active Substance: MONTELUKAST SODIUM
     Dosage: 10 MILLIGRAM, QD
     Route: 048
     Dates: start: 20180918, end: 20180925
  6. LYRICA [Suspect]
     Active Substance: PREGABALIN
     Indication: ARTHRALGIA
     Dosage: UNK
     Route: 048
     Dates: start: 20180821, end: 20180905
  7. MONTELUKAST KM [Suspect]
     Active Substance: MONTELUKAST SODIUM
     Indication: BRONCHITIS
     Dosage: 10 MILLIGRAM, QD
     Route: 048
     Dates: start: 20180903, end: 201809
  8. DESALEX TABLETS 5MG [Suspect]
     Active Substance: DESLORATADINE
     Indication: RASH PRURITIC
     Dosage: 5 MILLIGRAM, QD
     Route: 048
     Dates: start: 20180903, end: 20180910

REACTIONS (3)
  - Depression [Unknown]
  - Bronchitis [Recovered/Resolved]
  - Alopecia areata [Not Recovered/Not Resolved]

NARRATIVE: CASE EVENT DATE: 201809
